FAERS Safety Report 17845974 (Version 1)
Quarter: 2020Q2

REPORT INFORMATION
  Report Type: Spontaneous
  Country: US (occurrence: US)
  Receive Date: 20200530
  Receipt Date: 20200530
  Transmission Date: 20200714
  Serious: Yes (Other)
  Sender: FDA-Public Use
  Company Number: None

PATIENT
  Age: 43 Year
  Sex: Female
  Weight: 80.1 kg

DRUGS (9)
  1. FLONASE [Concomitant]
     Active Substance: FLUTICASONE PROPIONATE
  2. POTASSIUM [Concomitant]
     Active Substance: POTASSIUM
  3. EQUATE COOL AND HEAT PAIN RELIEVING LIQUID [Suspect]
     Active Substance: MENTHOL
     Indication: MYALGIA
     Dosage: ?          QUANTITY:1 ROLL ON;OTHER FREQUENCY:3-4 X^S/DAILY;?
     Route: 061
     Dates: start: 20200529, end: 20200529
  4. ELDERBERRY [Concomitant]
     Active Substance: HERBALS
  5. CALCIUM [Concomitant]
     Active Substance: CALCIUM
  6. LYRICA [Concomitant]
     Active Substance: PREGABALIN
  7. LISINOPRIL. [Concomitant]
     Active Substance: LISINOPRIL
  8. PEPCID [Concomitant]
     Active Substance: FAMOTIDINE
  9. MULTI-VITAMIN [Concomitant]
     Active Substance: .ALPHA.-TOCOPHEROL ACETATE, DL-\ASCORBIC ACID\CYANOCOBALAMIN\FLUORIDE ION\FOLIC ACID\NIACIN\PYRIDOXINE\RIBOFLAVIN\THIAMINE\VITAMIN A\VITAMIN D

REACTIONS (4)
  - Erythema [None]
  - Blister [None]
  - Pain [None]
  - Thermal burn [None]

NARRATIVE: CASE EVENT DATE: 20200529
